FAERS Safety Report 9600634 (Version 2)
Quarter: 2013Q4

REPORT INFORMATION
  Report Type: Spontaneous
  Country: US (occurrence: US)
  Receive Date: 20131004
  Receipt Date: 20131004
  Transmission Date: 20140711
  Serious: No
  Sender: FDA-Public Use
  Company Number: US-AMGEN-USASP2013022953

PATIENT
  Age: 64 Year
  Sex: Female
  Weight: 95.23 kg

DRUGS (15)
  1. ENBREL [Suspect]
     Indication: PRODUCT USED FOR UNKNOWN INDICATION
     Dosage: 50 MG, QWK
     Route: 058
  2. CYMBALTA [Concomitant]
     Dosage: 20 MG, UNK
  3. DIFLUCAN DUO [Concomitant]
     Dosage: 200 MG, UNK
  4. METHOTREXATE [Concomitant]
     Dosage: 2.5 MG, UNK
  5. VOLTAREN                           /00372301/ [Concomitant]
     Dosage: 1 %, UNK
  6. NEURONTIN [Concomitant]
     Dosage: 100 MG, UNK
  7. TRAMADOL HCL [Concomitant]
     Dosage: 50 MG, UNK
  8. TRAZODONE                          /00447702/ [Concomitant]
     Dosage: 50 MG, UNK
  9. METOPROLOL TARTRATE [Concomitant]
     Dosage: 50 MG, UNK
  10. FOLIC ACID [Concomitant]
     Dosage: 1 MG, UNK
  11. HYDROCHLOROTH [Concomitant]
     Dosage: 12.5 MG, UNK
  12. NEXIUM                             /01479302/ [Concomitant]
     Dosage: 40 MG, UNK
  13. CRESTOR [Concomitant]
     Dosage: 10 MG, UNK
  14. PRAMIPEXOLE [Concomitant]
     Dosage: 0.5 MG, UNK
  15. CITRACAL                           /00751520/ [Concomitant]
     Dosage: UNK

REACTIONS (7)
  - Abdominal pain [Unknown]
  - Abdominal distension [Unknown]
  - Weight increased [Unknown]
  - Stomatitis [Unknown]
  - Scab [Unknown]
  - Drug hypersensitivity [Unknown]
  - Local swelling [Unknown]
